FAERS Safety Report 5772329-6 (Version None)
Quarter: 2008Q2

REPORT INFORMATION
  Report Type: 
  Country: None (occurrence: None)
  Receive Date: 20080613
  Receipt Date: 20080609
  Transmission Date: 20081010
  Serious: Yes (Death, Other)
  Sender: FDA-Public Use
  Company Number: BR-BAXTER-2008BH001995

PATIENT
  Age: 51 Year
  Sex: Male
  Weight: 91 kg

DRUGS (2)
  1. ALBUMIN (HUMAN) [Suspect]
     Indication: HEPATIC CIRRHOSIS
     Route: 042
     Dates: start: 20080211, end: 20080211
  2. NORFLOXACIN [Concomitant]
     Indication: PERITONITIS BACTERIAL
     Route: 048
     Dates: start: 20080202

REACTIONS (7)
  - BLOOD CULTURE POSITIVE [None]
  - DYSPNOEA [None]
  - ESCHERICHIA INFECTION [None]
  - FEELING ABNORMAL [None]
  - PYREXIA [None]
  - SEPSIS [None]
  - TREMOR [None]
